FAERS Safety Report 14224901 (Version 1)
Quarter: 2017Q4

REPORT INFORMATION
  Report Type: Spontaneous
  Country: US (occurrence: US)
  Receive Date: 20171127
  Receipt Date: 20171127
  Transmission Date: 20180321
  Serious: No
  Sender: FDA-Public Use
  Company Number: US-TEVA-767903ACC

PATIENT
  Sex: Female

DRUGS (1)
  1. MEGESTROL [Suspect]
     Active Substance: MEGESTROL
     Indication: INCREASED APPETITE
     Dosage: 160 MILLIGRAM DAILY;

REACTIONS (1)
  - Insomnia [Unknown]
